FAERS Safety Report 17449372 (Version 1)
Quarter: 2020Q1

REPORT INFORMATION
  Report Type: Spontaneous
  Country: US (occurrence: US)
  Receive Date: 20200224
  Receipt Date: 20200224
  Transmission Date: 20200409
  Serious: No
  Sender: FDA-Public Use
  Company Number: US-ALLERGAN-1911395US

PATIENT
  Sex: Female

DRUGS (2)
  1. OXYBUTOL TABLETS [Concomitant]
     Dosage: UNK
  2. OXYTROL FOR WOMEN [Suspect]
     Active Substance: OXYBUTYNIN
     Indication: HYPERTONIC BLADDER
     Dosage: 3.9 MG EVERY 5-6 DAYS
     Route: 062
     Dates: start: 201903

REACTIONS (4)
  - Application site erythema [Not Recovered/Not Resolved]
  - Intentional product use issue [Unknown]
  - Application site pruritus [Not Recovered/Not Resolved]
  - Rash [Not Recovered/Not Resolved]
